FAERS Safety Report 16928647 (Version 2)
Quarter: 2019Q4

REPORT INFORMATION
  Report Type: Spontaneous
  Country: CA (occurrence: CA)
  Receive Date: 20191017
  Receipt Date: 20191017
  Transmission Date: 20200122
  Serious: Yes (Other)
  Sender: FDA-Public Use
  Company Number: CA-ABBVIE-19K-028-2967524-00

PATIENT
  Sex: Male
  Weight: 105 kg

DRUGS (3)
  1. AZATHIOPRINE. [Suspect]
     Active Substance: AZATHIOPRINE
     Indication: PRODUCT USED FOR UNKNOWN INDICATION
     Route: 065
  2. HUMIRA [Suspect]
     Active Substance: ADALIMUMAB
     Indication: CROHN^S DISEASE
     Route: 058
     Dates: end: 201909
  3. SULFASALAZINE. [Suspect]
     Active Substance: SULFASALAZINE
     Indication: PRODUCT USED FOR UNKNOWN INDICATION
     Route: 065

REACTIONS (12)
  - Impaired quality of life [Unknown]
  - Drug ineffective [Unknown]
  - Impaired work ability [Unknown]
  - Treatment noncompliance [Unknown]
  - Memory impairment [Unknown]
  - General physical health deterioration [Unknown]
  - Constipation [Unknown]
  - Diarrhoea [Unknown]
  - Haemorrhage [Unknown]
  - Abdominal pain [Unknown]
  - Abnormal faeces [Unknown]
  - Drug resistance [Unknown]
